FAERS Safety Report 19382647 (Version 1)
Quarter: 2021Q2

REPORT INFORMATION
  Report Type: Spontaneous
  Country: AU (occurrence: AU)
  Receive Date: 20210607
  Receipt Date: 20210607
  Transmission Date: 20210717
  Serious: Yes (Hospitalization)
  Sender: FDA-Public Use
  Company Number: AU-DSJP-DSU-2021-116779

PATIENT
  Age: 91 Year
  Sex: Female

DRUGS (1)
  1. OLMESARTAN MEDOXOMIL. [Suspect]
     Active Substance: OLMESARTAN MEDOXOMIL
     Indication: HYPERTENSION
     Dosage: UNK
     Route: 048
     Dates: start: 2009, end: 20191121

REACTIONS (4)
  - Constipation [Unknown]
  - Urinary retention [Unknown]
  - Hyponatraemia [Unknown]
  - Sprue-like enteropathy [Recovering/Resolving]
